FAERS Safety Report 9012967 (Version 2)
Quarter: 2013Q1

REPORT INFORMATION
  Report Type: Spontaneous
  Country: CN (occurrence: CN)
  Receive Date: 20130114
  Receipt Date: 20130225
  Transmission Date: 20140127
  Serious: Yes (Other)
  Sender: FDA-Public Use
  Company Number: CN-GLAXOSMITHKLINE-B0858404A

PATIENT
  Sex: Female

DRUGS (1)
  1. LAMICTAL [Suspect]
     Indication: EPILEPSY
     Dosage: 50MG TWICE PER DAY
     Route: 048
     Dates: start: 201106

REACTIONS (3)
  - Renal ischaemia [Not Recovered/Not Resolved]
  - Nausea [Not Recovered/Not Resolved]
  - Vomiting [Not Recovered/Not Resolved]
